FAERS Safety Report 9644688 (Version 1)
Quarter: 2013Q4

REPORT INFORMATION
  Report Type: Spontaneous
  Country: MY (occurrence: MY)
  Receive Date: 20131025
  Receipt Date: 20131025
  Transmission Date: 20140711
  Serious: Yes (Death)
  Sender: FDA-Public Use
  Company Number: MY-ROCHE-1294494

PATIENT
  Sex: 0

DRUGS (3)
  1. METALYSE [Suspect]
     Indication: PRODUCT USED FOR UNKNOWN INDICATION
     Route: 065
     Dates: start: 20131018
  2. GLYCERYL TRINITRATE [Concomitant]
     Route: 042
  3. HEPARIN [Concomitant]

REACTIONS (1)
  - Death [Fatal]
